FAERS Safety Report 16012095 (Version 1)
Quarter: 2019Q1

REPORT INFORMATION
  Report Type: Spontaneous
  Country: US (occurrence: US)
  Receive Date: 20190227
  Receipt Date: 20190227
  Transmission Date: 20190418
  Serious: No
  Sender: FDA-Public Use
  Company Number: US-TEVA-2019-US-1006655

PATIENT
  Age: 90 Year
  Sex: Female

DRUGS (2)
  1. LIDOCAINE TOPICAL 5% PATCH ACTAVIS [Suspect]
     Active Substance: LIDOCAINE
     Indication: DECUBITUS ULCER
     Route: 065
     Dates: start: 20190126
  2. LIDOCAINE TOPICAL 5% PATCH ACTAVIS [Suspect]
     Active Substance: LIDOCAINE
     Indication: ARTHRALGIA

REACTIONS (3)
  - Drug ineffective [Unknown]
  - Inappropriate schedule of product administration [Unknown]
  - Product use in unapproved indication [Unknown]
